FAERS Safety Report 7739034-8 (Version None)
Quarter: 2011Q3

REPORT INFORMATION
  Report Type: 
  Country: None (occurrence: None)
  Receive Date: 20110909
  Receipt Date: 20110830
  Transmission Date: 20111222
  Serious: No
  Sender: FDA-Public Use
  Company Number: US-BIOGENIDEC-2011BI033662

PATIENT
  Age: 56 Year
  Sex: Female

DRUGS (1)
  1. TYSABRI [Suspect]
     Indication: MULTIPLE SCLEROSIS
     Route: 042
     Dates: start: 20090325, end: 20110719

REACTIONS (8)
  - BALANCE DISORDER [None]
  - HYPOAESTHESIA [None]
  - COORDINATION ABNORMAL [None]
  - NERVE INJURY [None]
  - MOBILITY DECREASED [None]
  - GAIT DISTURBANCE [None]
  - FATIGUE [None]
  - CARPAL TUNNEL SYNDROME [None]
